FAERS Safety Report 9693412 (Version 2)
Quarter: 2013Q4

REPORT INFORMATION
  Report Type: Spontaneous
  Country: US (occurrence: None)
  Receive Date: 20131114
  Receipt Date: 20131202
  Transmission Date: 20140711
  Serious: Yes (Other)
  Sender: FDA-Public Use
  Company Number: ADR-2013-02067

PATIENT
  Age: 76 Year
  Sex: Male

DRUGS (5)
  1. LIORESAL [Suspect]
     Indication: MUSCLE SPASTICITY
  2. LEVOFLOXACIN [Concomitant]
  3. VANCOMYCIN [Concomitant]
  4. DIFLUCAN [Concomitant]
  5. LIPITOR [Concomitant]

REACTIONS (4)
  - Device dislocation [None]
  - Pain [None]
  - Spinal disorder [None]
  - Device breakage [None]
